FAERS Safety Report 8959771 (Version 3)
Quarter: 2013Q1

REPORT INFORMATION
  Report Type: Spontaneous
  Country: SE (occurrence: SE)
  Receive Date: 20121212
  Receipt Date: 20130307
  Transmission Date: 20140127
  Serious: Yes (Hospitalization, Other)
  Sender: FDA-Public Use
  Company Number: SE-AMGEN-SWESP2012079106

PATIENT
  Age: 58 Year
  Sex: Male

DRUGS (3)
  1. ENBREL [Suspect]
     Indication: PSORIASIS
     Dosage: UNK MG, QWK
     Dates: start: 2008, end: 2011
  2. ENBREL [Suspect]
     Indication: PSORIATIC ARTHROPATHY
     Dosage: 50 MG, QWK
     Dates: start: 201201, end: 201205
  3. TERBINAFINE [Concomitant]
     Dosage: 250 MG, 1X/DAY
     Dates: start: 20120328, end: 201205

REACTIONS (3)
  - Myelitis [Unknown]
  - Paraesthesia [Unknown]
  - Fungal infection [Unknown]
